FAERS Safety Report 8522167-6 (Version None)
Quarter: 2012Q3

REPORT INFORMATION
  Report Type: 
  Country: None (occurrence: None)
  Receive Date: 20120719
  Receipt Date: 20120716
  Transmission Date: 20120928
  Serious: Yes (Other)
  Sender: FDA-Public Use
  Company Number: SE-PFIZER INC-2012171665

PATIENT
  Age: 33 Year
  Sex: Female

DRUGS (2)
  1. VARENICLINE TARTRATE [Suspect]
     Dosage: UNK
     Dates: start: 20120616, end: 20120101
  2. VARENICLINE TARTRATE [Suspect]
     Dosage: 1 MG, UNK
     Dates: start: 20120101, end: 20120705

REACTIONS (12)
  - ABNORMAL DREAMS [None]
  - HEART RATE INCREASED [None]
  - HYPERSOMNIA [None]
  - NAUSEA [None]
  - FEELING ABNORMAL [None]
  - HAEMATOCHEZIA [None]
  - IRRITABILITY [None]
  - HEADACHE [None]
  - MOOD ALTERED [None]
  - FATIGUE [None]
  - ABDOMINAL DISCOMFORT [None]
  - DECREASED APPETITE [None]
